FAERS Safety Report 14846931 (Version 2)
Quarter: 2018Q4

REPORT INFORMATION
  Report Type: Spontaneous
  Country: FR (occurrence: FR)
  Receive Date: 20180504
  Receipt Date: 20181024
  Transmission Date: 20190204
  Serious: Yes (Hospitalization)
  Sender: FDA-Public Use
  Company Number: FR-MERCK KGAA-2047205

PATIENT
  Sex: Female

DRUGS (1)
  1. EUTHYROX [Suspect]
     Active Substance: LEVOTHYROXINE SODIUM
     Indication: PRODUCT USED FOR UNKNOWN INDICATION
     Dates: start: 2017

REACTIONS (11)
  - Aggression [None]
  - Irritability [None]
  - Fatigue [None]
  - Bedridden [None]
  - Psychiatric symptom [None]
  - Hypokinesia [None]
  - Migraine [None]
  - Anxiety [None]
  - Asocial behaviour [None]
  - Muscle spasms [None]
  - Impaired work ability [None]
